FAERS Safety Report 21659371 (Version 1)
Quarter: 2022Q4

REPORT INFORMATION
  Report Type: Spontaneous
  Country: US (occurrence: None)
  Receive Date: 20221129
  Receipt Date: 20221129
  Transmission Date: 20230112
  Serious: Yes (Hospitalization)
  Sender: FDA-Public Use
  Company Number: None

PATIENT
  Age: 56 Year
  Sex: Female
  Weight: 62.2 kg

DRUGS (3)
  1. HUMIRA [Suspect]
     Active Substance: ADALIMUMAB
     Dosage: Q2WEEKS
     Dates: end: 20211006
  2. METHIMAZOLE [Concomitant]
     Active Substance: METHIMAZOLE
  3. TRAMADOL [Concomitant]

REACTIONS (4)
  - Crohn^s disease [None]
  - COVID-19 [None]
  - Intentional product use issue [None]
  - Colitis ulcerative [None]

NARRATIVE: CASE EVENT DATE: 20211013
